FAERS Safety Report 9665441 (Version 8)
Quarter: 2014Q4

REPORT INFORMATION
  Report Type: Report from Study
  Country: KR (occurrence: KR)
  Receive Date: 20131104
  Receipt Date: 20141205
  Transmission Date: 20150529
  Serious: Yes (Hospitalization)
  Sender: FDA-Public Use
  Company Number: KR-ROCHE-1297668

PATIENT
  Age: 58 Year
  Sex: Male
  Weight: 58 kg

DRUGS (77)
  1. TELBIVUDINE [Concomitant]
     Active Substance: TELBIVUDINE
     Indication: PROPHYLAXIS
     Dosage: EVERYDAY
     Route: 048
     Dates: start: 20131018
  2. OXYCODONE [Concomitant]
     Active Substance: OXYCODONE
     Route: 048
     Dates: start: 20131012, end: 20131128
  3. KYTRIL [Concomitant]
     Active Substance: GRANISETRON HYDROCHLORIDE
     Route: 042
     Dates: start: 20140103, end: 20140103
  4. TACENOL ER [Concomitant]
     Indication: PROPHYLAXIS
     Dosage: ONCE
     Route: 048
     Dates: start: 20131018, end: 20131018
  5. ACETAMINOPHEN. [Concomitant]
     Active Substance: ACETAMINOPHEN
     Indication: PROPHYLAXIS
     Dosage: ONCE
     Route: 048
     Dates: start: 20131018, end: 20131018
  6. METOCLOPRAMIDE. [Concomitant]
     Active Substance: METOCLOPRAMIDE
     Route: 048
     Dates: start: 20131129, end: 20131204
  7. SULFAMETHOXAZOLE/TRIMETHOPRIM [Concomitant]
     Active Substance: SULFAMETHOXAZOLE\TRIMETHOPRIM
     Indication: PNEUMOCYSTIS JIROVECII PNEUMONIA
     Route: 048
     Dates: start: 20131226, end: 20140109
  8. LEVOFLOXACIN. [Concomitant]
     Active Substance: LEVOFLOXACIN
     Route: 042
     Dates: start: 20140202, end: 20140203
  9. MAGNESIUM OXIDE. [Concomitant]
     Active Substance: MAGNESIUM OXIDE
     Indication: CONSTIPATION
     Route: 048
     Dates: start: 20131010, end: 20131128
  10. MORPHINE SULFATE. [Concomitant]
     Active Substance: MORPHINE SULFATE
     Indication: MUSCULOSKELETAL PAIN
     Dosage: EVERYDAY
     Route: 042
     Dates: start: 20131010, end: 20131012
  11. PETHIDINE [Concomitant]
     Active Substance: MEPERIDINE
     Indication: PROPHYLAXIS
     Dosage: ONCE
     Route: 042
     Dates: start: 20131011, end: 20131011
  12. ACETAMINOPHEN. [Concomitant]
     Active Substance: ACETAMINOPHEN
     Dosage: ONCE
     Route: 048
     Dates: start: 20131108, end: 20131108
  13. DURAGESIC [Concomitant]
     Active Substance: FENTANYL
     Indication: CHEST PAIN
  14. PHOSTEN [Concomitant]
     Indication: HYPOPHOSPHATAEMIA
     Dosage: EVERYDAY
     Route: 042
     Dates: start: 20131028, end: 20131030
  15. METHOTREXATE [Concomitant]
     Active Substance: METHOTREXATE
     Indication: LYMPHOMA
     Dosage: MAINTANCE
     Route: 042
     Dates: start: 20140402, end: 20140714
  16. VINCRISTINE [Suspect]
     Active Substance: VINCRISTINE
     Indication: DIFFUSE LARGE B-CELL LYMPHOMA
     Route: 042
  17. OXYCODONE [Concomitant]
     Active Substance: OXYCODONE
     Indication: MUSCULOSKELETAL PAIN
     Route: 048
     Dates: start: 20131010, end: 20131128
  18. ACETAMINOPHEN. [Concomitant]
     Active Substance: ACETAMINOPHEN
     Dosage: ONCE
     Route: 048
     Dates: start: 20140202, end: 20140202
  19. ULCERMIN (SUCRALFATE) [Concomitant]
     Route: 048
     Dates: start: 20140103, end: 20140103
  20. LEUCOSTIM [Concomitant]
     Active Substance: FILGRASTIM
     Dosage: EVERYDAY
     Route: 058
     Dates: start: 20140108, end: 20140112
  21. CEFPODOXIME [Concomitant]
     Active Substance: CEFPODOXIME
     Indication: PROPHYLAXIS
     Route: 042
     Dates: start: 20131101, end: 20131107
  22. VINCRISTINE [Suspect]
     Active Substance: VINCRISTINE
     Dosage: MAINTAINCE THERAPY
     Route: 042
     Dates: start: 20140402, end: 20140714
  23. KYTRIL [Concomitant]
     Active Substance: GRANISETRON HYDROCHLORIDE
     Route: 048
     Dates: start: 20140124, end: 20140124
  24. KYTRIL [Concomitant]
     Active Substance: GRANISETRON HYDROCHLORIDE
     Route: 042
     Dates: start: 20140221, end: 20140221
  25. ACETAMINOPHEN. [Concomitant]
     Active Substance: ACETAMINOPHEN
     Dosage: ONCE
     Route: 048
     Dates: start: 20131129, end: 20131129
  26. ACETAMINOPHEN. [Concomitant]
     Active Substance: ACETAMINOPHEN
     Dosage: ONCE
     Route: 048
     Dates: start: 20140314, end: 20140314
  27. ULCERMIN (SUCRALFATE) [Concomitant]
     Indication: PROPHYLAXIS
     Route: 048
     Dates: start: 20131020, end: 20131022
  28. METOCLOPRAMIDE. [Concomitant]
     Active Substance: METOCLOPRAMIDE
     Indication: PROPHYLAXIS
     Route: 048
     Dates: start: 20131020, end: 20131022
  29. LEUCOSTIM [Concomitant]
     Active Substance: FILGRASTIM
     Dosage: EVERYDAY
     Route: 058
     Dates: start: 20140226, end: 20140302
  30. DURAGESIC [Concomitant]
     Active Substance: FENTANYL
     Indication: MUSCULOSKELETAL PAIN
     Dosage: EVERY THREE DAYS
     Route: 065
     Dates: start: 20131028
  31. SULFAMETHOXAZOLE/TRIMETHOPRIM [Concomitant]
     Active Substance: SULFAMETHOXAZOLE\TRIMETHOPRIM
     Route: 048
     Dates: start: 20140110
  32. RITUXIMAB [Suspect]
     Active Substance: RITUXIMAB
     Indication: DIFFUSE LARGE B-CELL LYMPHOMA
     Route: 042
     Dates: start: 20131018
  33. MORPHINE SULFATE. [Concomitant]
     Active Substance: MORPHINE SULFATE
     Indication: NECK PAIN
     Dosage: ONCE
     Route: 042
     Dates: start: 20131014, end: 20131014
  34. KYTRIL [Concomitant]
     Active Substance: GRANISETRON HYDROCHLORIDE
     Route: 048
     Dates: start: 20131108, end: 20131110
  35. TACENOL ER [Concomitant]
     Dosage: ONCE
     Route: 048
     Dates: start: 20131108, end: 20131108
  36. TACENOL ER [Concomitant]
     Dosage: ONCE
     Route: 048
     Dates: start: 20131129, end: 20131129
  37. CHLORPHENIRAMINE MALEATE. [Concomitant]
     Active Substance: CHLORPHENIRAMINE MALEATE
     Dosage: ONCE
     Route: 042
     Dates: start: 20131108, end: 20131108
  38. CHLORPHENIRAMINE MALEATE. [Concomitant]
     Active Substance: CHLORPHENIRAMINE MALEATE
     Dosage: ONCE
     Route: 042
     Dates: start: 20140103, end: 20140103
  39. CHLORPHENIRAMINE MALEATE. [Concomitant]
     Active Substance: CHLORPHENIRAMINE MALEATE
     Dosage: ONCE
     Route: 042
     Dates: start: 20140221, end: 20140221
  40. CHLORPHENIRAMINE MALEATE. [Concomitant]
     Active Substance: CHLORPHENIRAMINE MALEATE
     Dosage: ONCE
     Route: 042
     Dates: start: 20140314, end: 20140314
  41. ULCERMIN (SUCRALFATE) [Concomitant]
     Route: 048
     Dates: start: 20131108, end: 20131113
  42. DURAGESIC [Concomitant]
     Active Substance: FENTANYL
     Indication: OROPHARYNGEAL PAIN
  43. HEXAMEDINE [Concomitant]
     Indication: OROPHARYNGEAL PAIN
     Route: 065
     Dates: start: 20131028
  44. CYCLOPHOSPHAMID [Suspect]
     Active Substance: CYCLOPHOSPHAMIDE
     Indication: DIFFUSE LARGE B-CELL LYMPHOMA
     Route: 065
  45. MORPHINE SULFATE. [Concomitant]
     Active Substance: MORPHINE SULFATE
     Dosage: ONCE
     Route: 042
     Dates: start: 20131017, end: 20131017
  46. TACENOL ER [Concomitant]
     Dosage: ONCE
     Route: 048
     Dates: start: 20140221, end: 20140221
  47. CHLORPHENIRAMINE MALEATE. [Concomitant]
     Active Substance: CHLORPHENIRAMINE MALEATE
     Dosage: ONCE
     Route: 042
     Dates: start: 20140124, end: 20140124
  48. ULCERMIN (SUCRALFATE) [Concomitant]
     Route: 048
     Dates: start: 20131129, end: 20131204
  49. LEUCOSTIM [Concomitant]
     Active Substance: FILGRASTIM
     Dosage: EVERYDAY
     Route: 058
     Dates: start: 20140202, end: 20140204
  50. MUPIROCIN. [Concomitant]
     Active Substance: MUPIROCIN
     Indication: DERMATITIS
     Route: 050
     Dates: start: 20131028, end: 20131028
  51. DURAGESIC [Concomitant]
     Active Substance: FENTANYL
     Indication: NECK PAIN
  52. HEXAMEDINE [Concomitant]
     Indication: PROPHYLAXIS
  53. NYSTATIN. [Concomitant]
     Active Substance: NYSTATIN
     Indication: OROPHARYNGEAL PAIN
     Dosage: 1:5000 GARGLE SOLUTION
     Route: 065
     Dates: start: 20131028
  54. LEVOFLOXACIN. [Concomitant]
     Active Substance: LEVOFLOXACIN
     Indication: INFECTION
     Route: 048
     Dates: start: 20131224, end: 20140103
  55. DOXORUBICIN [Suspect]
     Active Substance: DOXORUBICIN
     Indication: DIFFUSE LARGE B-CELL LYMPHOMA
     Route: 065
  56. OXYCODONE [Concomitant]
     Active Substance: OXYCODONE
     Indication: NECK PAIN
     Route: 048
     Dates: start: 20131010, end: 20131011
  57. KYTRIL [Concomitant]
     Active Substance: GRANISETRON HYDROCHLORIDE
     Route: 048
     Dates: start: 20140103, end: 20140105
  58. TACENOL ER [Concomitant]
     Dosage: ONCE
     Route: 048
     Dates: start: 20140103, end: 20140103
  59. CHLORPHENIRAMINE MALEATE. [Concomitant]
     Active Substance: CHLORPHENIRAMINE MALEATE
     Indication: PROPHYLAXIS
     Dosage: ONCE
     Route: 042
     Dates: start: 20131018, end: 20131018
  60. CHLORPHENIRAMINE MALEATE. [Concomitant]
     Active Substance: CHLORPHENIRAMINE MALEATE
     Dosage: ONCE
     Route: 042
     Dates: start: 20131129, end: 20131129
  61. LEUCOSTIM [Concomitant]
     Active Substance: FILGRASTIM
     Indication: PROPHYLAXIS
     Dosage: EVERYDAY
     Route: 058
     Dates: start: 20131113, end: 20131117
  62. LEUCOSTIM [Concomitant]
     Active Substance: FILGRASTIM
     Dosage: EVERYDAY
     Route: 058
     Dates: start: 20131204, end: 20131208
  63. LASIX [Concomitant]
     Active Substance: FUROSEMIDE
     Dosage: ONCE
     Route: 042
     Dates: start: 20131030, end: 20131030
  64. LEVOFLOXACIN. [Concomitant]
     Active Substance: LEVOFLOXACIN
     Route: 048
     Dates: start: 20140204, end: 20140210
  65. NITROGLYCERIN. [Concomitant]
     Active Substance: NITROGLYCERIN
     Route: 048
     Dates: start: 20140212, end: 20140212
  66. AMBROXOL HCL [Concomitant]
     Route: 048
     Dates: start: 20140212, end: 20140216
  67. PREDNISOLONE. [Suspect]
     Active Substance: PREDNISOLONE
     Indication: DIFFUSE LARGE B-CELL LYMPHOMA
     Route: 065
  68. DUPHALAC [Concomitant]
     Active Substance: LACTULOSE
     Indication: CONSTIPATION
     Route: 048
     Dates: start: 20131010, end: 20131128
  69. KYTRIL [Concomitant]
     Active Substance: GRANISETRON HYDROCHLORIDE
     Indication: PROPHYLAXIS
     Route: 042
     Dates: start: 20131018, end: 20131018
  70. KYTRIL [Concomitant]
     Active Substance: GRANISETRON HYDROCHLORIDE
     Route: 048
     Dates: start: 20131129, end: 20131201
  71. TACENOL ER [Concomitant]
     Dosage: ONCE
     Route: 048
     Dates: start: 20140124, end: 20140124
  72. METOCLOPRAMIDE. [Concomitant]
     Active Substance: METOCLOPRAMIDE
     Route: 048
     Dates: start: 20131108, end: 20131113
  73. METOCLOPRAMIDE. [Concomitant]
     Active Substance: METOCLOPRAMIDE
     Route: 048
     Dates: start: 20140103, end: 20140103
  74. GASTER [Concomitant]
     Active Substance: FAMOTIDINE
     Indication: PROPHYLAXIS
     Route: 048
     Dates: start: 20131019, end: 20131024
  75. NYSTATIN. [Concomitant]
     Active Substance: NYSTATIN
     Indication: PROPHYLAXIS
  76. LACTULOSE. [Concomitant]
     Active Substance: LACTULOSE
     Indication: CONSTIPATION
     Dosage: EVERY DAY
     Route: 048
     Dates: start: 20140203, end: 20140203
  77. PROCARBAZINE [Concomitant]
     Active Substance: PROCARBAZINE
     Route: 048
     Dates: start: 20140402, end: 20140714

REACTIONS (2)
  - Febrile neutropenia [Recovered/Resolved]
  - Oesophagitis [Recovered/Resolved]

NARRATIVE: CASE EVENT DATE: 20131028
